FAERS Safety Report 8258379-9 (Version None)
Quarter: 2012Q2

REPORT INFORMATION
  Report Type: 
  Country: None (occurrence: None)
  Receive Date: 20120404
  Receipt Date: 20120327
  Transmission Date: 20120825
  Serious: Yes (Death)
  Sender: FDA-Public Use
  Company Number: JP-PFIZER INC-2012076370

PATIENT
  Age: 69 Year
  Sex: Male
  Weight: 54 kg

DRUGS (8)
  1. RESTAMIN [Concomitant]
     Indication: PROPHYLAXIS
     Dosage: 50 MG, 1X/DAY
     Route: 048
  2. MAGMITT [Concomitant]
     Dosage: 1.5 G, 3X/DAY
     Route: 048
     Dates: start: 20110728
  3. PROCHLORPERAZINE [Concomitant]
     Dosage: 15 MG, 2X/WEEK
     Route: 048
     Dates: start: 20110728
  4. TEMSIROLIMUS [Suspect]
     Indication: RENAL CELL CARCINOMA
     Dosage: 25 MG, UNK
     Dates: start: 20110726
  5. OXYCONTIN [Concomitant]
     Dosage: 10-20 MG TWICE DAILY
     Route: 048
     Dates: start: 20110728
  6. LOXONIN [Concomitant]
     Dosage: 60 MG, AS NEEDED
     Route: 048
  7. CODEINE PHOSPHATE [Concomitant]
     Dosage: 1 G, AS NEEDED
     Route: 048
  8. CLEANAL [Concomitant]
     Dosage: 400 MG, 2X/DAY
     Route: 048
     Dates: start: 20110728

REACTIONS (4)
  - DISEASE PROGRESSION [None]
  - RENAL CELL CARCINOMA [None]
  - NEOPLASM PROGRESSION [None]
  - METASTATIC RENAL CELL CARCINOMA [None]
